FAERS Safety Report 8210385-6 (Version None)
Quarter: 2012Q1

REPORT INFORMATION
  Report Type: 
  Country: None (occurrence: None)
  Receive Date: 20120314
  Receipt Date: 20110407
  Transmission Date: 20120608
  Serious: No
  Sender: FDA-Public Use
  Company Number: US-ASTRAZENECA-2009SE05855

PATIENT
  Sex: Female
  Weight: 89.8 kg

DRUGS (8)
  1. BIOTIN [Concomitant]
  2. PREMARIN [Concomitant]
  3. LORAZEPAM [Concomitant]
  4. ATIVAN [Concomitant]
  5. MULTI-VITAMIN [Concomitant]
  6. WELLBUTRIN [Concomitant]
  7. TOPROL-XL [Suspect]
     Route: 048
  8. TOPROL-XL [Suspect]
     Route: 048

REACTIONS (9)
  - HEART RATE INCREASED [None]
  - FATIGUE [None]
  - MALAISE [None]
  - CARDIAC FLUTTER [None]
  - DYSPNOEA [None]
  - DYSPEPSIA [None]
  - DRUG DOSE OMISSION [None]
  - SUPRAVENTRICULAR TACHYCARDIA [None]
  - CHEST DISCOMFORT [None]
